FAERS Safety Report 7324080-9 (Version None)
Quarter: 2011Q1

REPORT INFORMATION
  Report Type: 
  Country: None (occurrence: None)
  Receive Date: 20110217
  Receipt Date: 20110208
  Transmission Date: 20110831
  Serious: Yes (Other)
  Sender: FDA-Public Use
  Company Number: 2011MA001150

PATIENT
  Sex: Female

DRUGS (1)
  1. METOCLOPRAMIDE [Suspect]
     Dosage: PO
     Route: 048
     Dates: start: 20100301, end: 20100601

REACTIONS (3)
  - EMOTIONAL DISORDER [None]
  - DYSKINESIA [None]
  - ECONOMIC PROBLEM [None]
